FAERS Safety Report 7763776-1 (Version None)
Quarter: 2011Q3

REPORT INFORMATION
  Report Type: 
  Country: None (occurrence: None)
  Receive Date: 20110916
  Receipt Date: 20110909
  Transmission Date: 20111222
  Serious: Yes (Other)
  Sender: FDA-Public Use
  Company Number: 2011MA008368

PATIENT
  Age: 74 Year
  Sex: Female

DRUGS (12)
  1. PRAMIPEXOLE DIHYDROCHLORIDE [Suspect]
     Indication: PARKINSON'S DISEASE
     Dosage: 1 MG; TID; PO
     Route: 048
     Dates: start: 20060801, end: 20090929
  2. STALEVO 100 [Concomitant]
  3. RAMIPRIL [Concomitant]
  4. QUININE SULFATE [Concomitant]
  5. ACETAMINOPHEN [Concomitant]
  6. DOMPERIDONE [Concomitant]
  7. MADOPAR [Concomitant]
  8. FUROSEMIDE [Concomitant]
  9. ALBUTEROL [Concomitant]
  10. ROPINIROLE [Concomitant]
  11. SINEMET [Concomitant]
  12. LANSOPRAZOLE [Concomitant]

REACTIONS (2)
  - PERSONALITY CHANGE [None]
  - PATHOLOGICAL GAMBLING [None]
